FAERS Safety Report 20041730 (Version 4)
Quarter: 2022Q1

REPORT INFORMATION
  Report Type: Report from Study
  Country: GB (occurrence: GB)
  Receive Date: 20211108
  Receipt Date: 20220206
  Transmission Date: 20220423
  Serious: Yes (Hospitalization)
  Sender: FDA-Public Use
  Company Number: GB-ABBVIE-21K-167-4148070-00

PATIENT
  Age: 82 Year
  Sex: Male

DRUGS (2)
  1. CARBIDOPA\LEVODOPA [Suspect]
     Active Substance: CARBIDOPA\LEVODOPA
     Indication: Parkinson^s disease
     Dosage: 20MG/5MG
     Route: 050
     Dates: end: 2021
  2. CARBIDOPA\LEVODOPA [Suspect]
     Active Substance: CARBIDOPA\LEVODOPA

REACTIONS (4)
  - Cerebrovascular accident [Unknown]
  - Infection [Unknown]
  - Parkinson^s disease [Unknown]
  - Device dislocation [Unknown]

NARRATIVE: CASE EVENT DATE: 20211001
